FAERS Safety Report 9745014 (Version 8)
Quarter: 2014Q4

REPORT INFORMATION
  Report Type: Report from Study
  Country: JP (occurrence: JP)
  Receive Date: 20131211
  Receipt Date: 20141006
  Transmission Date: 20150529
  Serious: Yes (Death, Life-Threatening, Hospitalization)
  Sender: FDA-Public Use
  Company Number: JP-PFIZER INC-2013349841

PATIENT
  Age: 75 Year
  Sex: Female
  Weight: 40 kg

DRUGS (4)
  1. UNASYN [Suspect]
     Active Substance: AMPICILLIN SODIUM\SULBACTAM SODIUM
     Dosage: 1.5 G, 1X/DAY
     Dates: start: 20131028, end: 20131028
  2. XALKORI [Suspect]
     Active Substance: CRIZOTINIB
     Indication: NON-SMALL CELL LUNG CANCER METASTATIC
     Dosage: 250 MG, 2X/DAY
     Route: 048
     Dates: start: 20131007, end: 20131027
  3. CEFAZOLIN [Suspect]
     Active Substance: CEFAZOLIN
     Dosage: 1 G, 3X/DAY
     Dates: start: 20131030, end: 20131105
  4. MEROPEN [Suspect]
     Active Substance: MEROPENEM
     Dosage: 0.5 G, 2X/DAY
     Dates: start: 20131029, end: 20131029

REACTIONS (3)
  - Disseminated intravascular coagulation [Fatal]
  - Liver disorder [Recovering/Resolving]
  - Deep vein thrombosis [Not Recovered/Not Resolved]

NARRATIVE: CASE EVENT DATE: 20131011
